FAERS Safety Report 9257578 (Version 1)
Quarter: 2013Q2

REPORT INFORMATION
  Report Type: Spontaneous
  Country: US (occurrence: None)
  Receive Date: 20130424
  Receipt Date: 20130424
  Transmission Date: 20140414
  Serious: No
  Sender: FDA-Public Use
  Company Number: None

PATIENT
  Age: 64 Year
  Sex: Male
  Weight: 83.6 kg

DRUGS (2)
  1. BOCEPREVIR [Suspect]
     Indication: HEPATITIS C
     Route: 048
     Dates: start: 20121011, end: 20121214
  2. RIBAVIRIN [Suspect]
     Indication: HEPATITIS C
     Dosage: MG PO
     Route: 048
     Dates: start: 20120913, end: 20121211

REACTIONS (9)
  - Hepatitis C [None]
  - Tonsillitis [None]
  - Cough [None]
  - Pneumonia [None]
  - Pulmonary mass [None]
  - Lower respiratory tract infection fungal [None]
  - Lower respiratory tract inflammation [None]
  - Lung neoplasm malignant [None]
  - Pulmonary cavitation [None]
